FAERS Safety Report 9294290 (Version 1)
Quarter: 2013Q1

REPORT INFORMATION
  Report Type: Spontaneous
  Country: US (occurrence: None)
  Receive Date: 20121214
  Receipt Date: 20121214
  Transmission Date: 20140127
  Serious: Yes (Hospitalization, Disabling)
  Sender: FDA-Public Use
  Company Number: 1206USA02688

PATIENT
  Sex: Male

DRUGS (2)
  1. JANUVIA (SITAGLIPTIN PHOSPHATE) FILM-COATED TABLET [Suspect]
     Indication: DIABETES MELLITUS
     Route: 048
  2. MK-9378 (METFORMIN) TABLET [Concomitant]

REACTIONS (1)
  - Pancreatitis [None]
